FAERS Safety Report 7108524-3 (Version None)
Quarter: 2010Q4

REPORT INFORMATION
  Report Type: 
  Country: None (occurrence: None)
  Receive Date: 20101117
  Receipt Date: 20100804
  Transmission Date: 20110411
  Serious: No
  Sender: FDA-Public Use
  Company Number: A0875948A

PATIENT
  Sex: Female

DRUGS (1)
  1. VOTRIENT [Suspect]
     Dosage: 800MG PER DAY
     Route: 065
     Dates: start: 20100505, end: 20100728

REACTIONS (4)
  - DIARRHOEA [None]
  - DIPLOPIA [None]
  - HAEMORRHOIDS [None]
  - VISION BLURRED [None]
